FAERS Safety Report 4405242-7 (Version None)
Quarter: 2004Q3

REPORT INFORMATION
  Report Type: 
  Country: None (occurrence: None)
  Receive Date: 20040722
  Receipt Date: 20040722
  Transmission Date: 20050211
  Serious: Yes (Hospitalization)
  Sender: FDA-Public Use
  Company Number: None

PATIENT
  Age: 56 Year
  Weight: 91.2 kg

DRUGS (9)
  1. UNASYN [Suspect]
  2. PREDNISONE [Concomitant]
  3. SILVER SULFADIAZINE [Concomitant]
  4. RANITIDINE [Concomitant]
  5. SODIUM CHLO [Concomitant]
  6. LORATADINE [Concomitant]
  7. LEVOTHYROXINE SODIUM [Concomitant]
  8. HYDROCHLOROTHIAZIDE [Concomitant]
  9. ENALAPRIL MALEATE [Concomitant]

REACTIONS (1)
  - RASH [None]
